FAERS Safety Report 10149477 (Version 1)
Quarter: 2014Q2

REPORT INFORMATION
  Report Type: Spontaneous
  Country: DE (occurrence: DE)
  Receive Date: 20140502
  Receipt Date: 20140502
  Transmission Date: 20141212
  Serious: Yes (Other)
  Sender: FDA-Public Use
  Company Number: DE-SA-2014SA055133

PATIENT
  Age: 51 Year
  Sex: Female
  Weight: 80 kg

DRUGS (3)
  1. LEMTRADA [Suspect]
     Indication: MULTIPLE SCLEROSIS
     Dosage: FOR 5 DAYS
     Route: 042
     Dates: start: 20140120, end: 20140124
  2. L-THYROXINE [Concomitant]
     Indication: HYPOTHYROIDISM
     Dosage: EVERY MORNING
     Route: 048
     Dates: start: 201301
  3. LATANOPROST [Concomitant]
     Indication: GLAUCOMA
     Dosage: 0.005% EYE DROPS
     Dates: start: 201201

REACTIONS (3)
  - Gastritis [Unknown]
  - Colon adenoma [Unknown]
  - Colon dysplasia [Unknown]
